FAERS Safety Report 7561446-6 (Version None)
Quarter: 2011Q2

REPORT INFORMATION
  Report Type: 
  Country: None (occurrence: None)
  Receive Date: 20110621
  Receipt Date: 20100827
  Transmission Date: 20111010
  Serious: No
  Sender: FDA-Public Use
  Company Number: US-ASTRAZENECA-2010SE35354

PATIENT
  Sex: Male

DRUGS (1)
  1. PULMICORT FLEXHALER [Suspect]
     Dosage: 180 MCG DAILY, 1 PUFF QD
     Route: 055

REACTIONS (2)
  - DRUG DOSE OMISSION [None]
  - FUNGAL INFECTION [None]
